FAERS Safety Report 13871815 (Version 1)
Quarter: 2017Q3

REPORT INFORMATION
  Report Type: Spontaneous
  Country: GB (occurrence: GB)
  Receive Date: 20170816
  Receipt Date: 20170816
  Transmission Date: 20171127
  Serious: Yes (Death, Hospitalization)
  Sender: FDA-Public Use
  Company Number: GB-JNJFOC-20170812103

PATIENT
  Sex: Male
  Weight: 116 kg

DRUGS (1)
  1. IBRUTINIB [Suspect]
     Active Substance: IBRUTINIB
     Indication: MANTLE CELL LYMPHOMA
     Route: 048
     Dates: start: 201704, end: 201706

REACTIONS (3)
  - Mantle cell lymphoma [Fatal]
  - Tachyarrhythmia [Fatal]
  - Electrolyte imbalance [Fatal]
